FAERS Safety Report 5004085-3 (Version None)
Quarter: 2006Q2

REPORT INFORMATION
  Report Type: 
  Country: None (occurrence: None)
  Receive Date: 20060517
  Receipt Date: 20060510
  Transmission Date: 20061013
  Serious: Yes (Other)
  Sender: FDA-Public Use
  Company Number: US-SANOFI-SYNTHELABO-A03200602953

PATIENT
  Sex: Female

DRUGS (6)
  1. AMBIEN [Suspect]
     Indication: INSOMNIA
     Route: 048
     Dates: start: 20010101
  2. AMBIEN [Suspect]
     Route: 048
     Dates: start: 20010101, end: 20010101
  3. AMBIEN [Suspect]
     Route: 048
     Dates: start: 20050101
  4. MORPHINE [Concomitant]
     Route: 048
  5. MORPHINE [Concomitant]
     Dosage: 6 TO 8 TABLETS
     Route: 048
  6. MORPHINE [Concomitant]
     Dosage: 6 TO 8 TABLETS
     Route: 048

REACTIONS (11)
  - AMNESIA [None]
  - CONTUSION [None]
  - DEPENDENCE [None]
  - DRUG ABUSER [None]
  - DRUG INEFFECTIVE [None]
  - DRUG WITHDRAWAL SYNDROME [None]
  - EATING DISORDER [None]
  - FOOT FRACTURE [None]
  - ROAD TRAFFIC ACCIDENT [None]
  - SLEEP TALKING [None]
  - SLEEP WALKING [None]
